FAERS Safety Report 6682502-0 (Version None)
Quarter: 2010Q2

REPORT INFORMATION
  Report Type: 
  Country: None (occurrence: None)
  Receive Date: 20100414
  Receipt Date: 20100414
  Transmission Date: 20101027
  Serious: Yes (Hospitalization)
  Sender: FDA-Public Use
  Company Number: None

PATIENT
  Sex: Female
  Weight: 19.9 kg

DRUGS (13)
  1. CYCLOPHOSPHAMIDE [Suspect]
  2. THIOTEPA [Suspect]
  3. ZOVIRAX [Concomitant]
  4. CHLORHEXIDINE (PERIDEX) [Concomitant]
  5. CIPROFLOXACIN [Concomitant]
  6. DIPHENHYDRAMINE (BENADRYL) [Concomitant]
  7. DIFLUCAN [Concomitant]
  8. MEROPENEM(MERREM) [Concomitant]
  9. NYSTATIN (MYCOSTATIN) [Concomitant]
  10. OLANZAPINE (ZYPREXA ZYDIS) [Concomitant]
  11. PENTAMIDINE (PENTAM) [Concomitant]
  12. URSODIOL (ACTIGALL) [Concomitant]
  13. VANDOMYCIN (VANCOCIN) [Concomitant]

REACTIONS (9)
  - ACUTE HEPATIC FAILURE [None]
  - COAGULOPATHY [None]
  - ENCEPHALOPATHY [None]
  - FLUID RETENTION [None]
  - MALAISE [None]
  - PLEURAL EFFUSION [None]
  - RENAL IMPAIRMENT [None]
  - VENOOCCLUSIVE LIVER DISEASE [None]
  - WEIGHT INCREASED [None]
